FAERS Safety Report 5709879-4 (Version None)
Quarter: 2008Q2

REPORT INFORMATION
  Report Type: 
  Country: None (occurrence: None)
  Receive Date: 20080418
  Receipt Date: 20070521
  Transmission Date: 20081010
  Serious: No
  Sender: FDA-Public Use
  Company Number: US-ASTRAZENECA-2007UW12592

PATIENT
  Age: 55 Year
  Sex: Male
  Weight: 65.3 kg

DRUGS (2)
  1. TOPROL-XL [Suspect]
     Indication: ATRIAL FIBRILLATION
     Route: 048
     Dates: start: 20070413
  2. DILANTIN [Concomitant]

REACTIONS (2)
  - DIARRHOEA [None]
  - TREMOR [None]
